FAERS Safety Report 10158713 (Version 1)
Quarter: 2014Q2

REPORT INFORMATION
  Report Type: Spontaneous
  Country: US (occurrence: US)
  Receive Date: 20140508
  Receipt Date: 20140508
  Transmission Date: 20141212
  Serious: No
  Sender: FDA-Public Use
  Company Number: US-TEVA-406528USA

PATIENT
  Age: 24 Year
  Sex: Male

DRUGS (1)
  1. CLARAVIS [Suspect]

REACTIONS (3)
  - Drug ineffective [Unknown]
  - Depressed mood [Unknown]
  - Alopecia [Unknown]
